FAERS Safety Report 25634424 (Version 1)
Quarter: 2025Q3

REPORT INFORMATION
  Report Type: Spontaneous
  Country: US (occurrence: None)
  Receive Date: 20250801
  Receipt Date: 20250801
  Transmission Date: 20251020
  Serious: Yes (Hospitalization)
  Sender: FDA-CTU
  Company Number: None

PATIENT
  Sex: Female

DRUGS (2)
  1. MACITENTAN\TADALAFIL [Suspect]
     Active Substance: MACITENTAN\TADALAFIL
     Indication: Pulmonary arterial hypertension
     Dosage: 1 DF DOSAGE FORM DAILY ORAL
     Route: 048
     Dates: start: 20250619
  2. UPTRAVI [Suspect]
     Active Substance: SELEXIPAG

REACTIONS (2)
  - Deep vein thrombosis [None]
  - Embolism [None]
